FAERS Safety Report 7295318-1 (Version None)
Quarter: 2011Q1

REPORT INFORMATION
  Report Type: 
  Country: None (occurrence: None)
  Receive Date: 20110211
  Receipt Date: 20110211
  Transmission Date: 20110831
  Serious: Yes (Other)
  Sender: FDA-Public Use
  Company Number: None

PATIENT
  Age: 16 Year
  Sex: Female
  Weight: 63.5036 kg

DRUGS (1)
  1. DOXEPIN HCL [Suspect]
     Indication: PRURITUS
     Dosage: 75 MG QHS PO
     Route: 048
     Dates: start: 20080609, end: 20091019

REACTIONS (2)
  - PRURITUS [None]
  - DERMATITIS ATOPIC [None]
